FAERS Safety Report 25704556 (Version 2)
Quarter: 2025Q3

REPORT INFORMATION
  Report Type: Spontaneous
  Country: US (occurrence: US)
  Receive Date: 20250820
  Receipt Date: 20250828
  Transmission Date: 20251020
  Serious: No
  Sender: LUPIN
  Company Number: US-LUPIN PHARMACEUTICALS INC.-2025-07311

PATIENT
  Age: 74 Year
  Weight: 86.168 kg

DRUGS (1)
  1. PREDNISOLONE ACETATE [Suspect]
     Active Substance: PREDNISOLONE ACETATE
     Indication: Post procedural complication
     Dosage: UNK , QID

REACTIONS (5)
  - Fluid retention [Unknown]
  - Abdominal distension [Unknown]
  - Insomnia [Unknown]
  - Weight increased [Unknown]
  - Peripheral swelling [Unknown]
